FAERS Safety Report 10149898 (Version 1)
Quarter: 2014Q2

REPORT INFORMATION
  Report Type: Spontaneous
  Country: US (occurrence: None)
  Receive Date: 20140501
  Receipt Date: 20140501
  Transmission Date: 20141212
  Serious: Yes (Other)
  Sender: FDA-Public Use
  Company Number: None

PATIENT
  Age: 63 Year
  Sex: Male
  Weight: 86.18 kg

DRUGS (2)
  1. CREON [Suspect]
     Indication: DIVERTICULITIS
     Dosage: 2 WITH EACH MEAL
     Route: 048
     Dates: start: 20140428, end: 20140429
  2. CREON [Suspect]
     Dosage: 2 WITH EACH MEAL
     Route: 048
     Dates: start: 20140428, end: 20140429

REACTIONS (6)
  - Pain [None]
  - Muscle spasms [None]
  - Vomiting [None]
  - Diarrhoea [None]
  - Mental status changes [None]
  - Drug ineffective [None]
